FAERS Safety Report 12164535 (Version 2)
Quarter: 2016Q1

REPORT INFORMATION
  Report Type: Spontaneous
  Country: US (occurrence: US)
  Receive Date: 20160309
  Receipt Date: 20160314
  Transmission Date: 20160526
  Serious: Yes (Death)
  Sender: FDA-Public Use
  Company Number: US-ROCHE-1697795

PATIENT
  Age: 36 Year
  Sex: Female

DRUGS (3)
  1. COTELLIC [Suspect]
     Active Substance: COBIMETINIB
     Indication: MALIGNANT MELANOMA
     Dosage: 60 MG DAILY FOR 21 DAYS
     Route: 065
     Dates: start: 20151222, end: 20160303
  2. COTELLIC [Suspect]
     Active Substance: COBIMETINIB
     Dosage: 60 MG DAILY FOR 21 DAYS
     Route: 065
     Dates: start: 20160122
  3. ZELBORAF [Suspect]
     Active Substance: VEMURAFENIB
     Indication: MALIGNANT MELANOMA
     Route: 065
     Dates: start: 20151222, end: 20160303

REACTIONS (7)
  - Rash [Not Recovered/Not Resolved]
  - Nausea [Unknown]
  - Vomiting [Unknown]
  - Death [Fatal]
  - Contusion [Unknown]
  - Vision blurred [Unknown]
  - Urticaria [Not Recovered/Not Resolved]

NARRATIVE: CASE EVENT DATE: 201601
